FAERS Safety Report 25215961 (Version 3)
Quarter: 2025Q2

REPORT INFORMATION
  Report Type: Report from Study
  Country: EG (occurrence: EG)
  Receive Date: 20250418
  Receipt Date: 20250523
  Transmission Date: 20250717
  Serious: Yes (Hospitalization, Other)
  Sender: ABBVIE
  Company Number: EG-ABBVIE-5287756

PATIENT
  Sex: Female
  Weight: 75 kg

DRUGS (3)
  1. HUMIRA [Suspect]
     Active Substance: ADALIMUMAB
     Indication: Crohn^s disease
     Dosage: FORM STRENGTH: 40 MILLIGRAM, SOLUTION FOR INJECTION IN PRE-FILLED SYRINGE
     Route: 058
     Dates: start: 20230221, end: 20241212
  2. HUMIRA [Suspect]
     Active Substance: ADALIMUMAB
     Indication: Colitis ulcerative
     Dosage: LAST ADMIN DATE WAS DEC 2022 OR JAN 2023, SOLUTION FOR INJECTION IN PRE-FILLED SYRINGE
     Route: 058
     Dates: start: 202001
  3. HUMIRA [Suspect]
     Active Substance: ADALIMUMAB
     Route: 058
     Dates: start: 20250410

REACTIONS (13)
  - Caesarean section [Unknown]
  - Maternal exposure during pregnancy [Unknown]
  - Diarrhoea [Not Recovered/Not Resolved]
  - Live birth [Unknown]
  - Inflammation [Not Recovered/Not Resolved]
  - Galactostasis [Recovered/Resolved]
  - Infection [Recovered/Resolved]
  - Haemorrhage [Not Recovered/Not Resolved]
  - Mastitis [Recovered/Resolved]
  - Intrapartum haemorrhage [Recovered/Resolved]
  - Uterine contractions during pregnancy [Recovered/Resolved]
  - Weight increased [Unknown]
  - Sacroiliitis [Not Recovered/Not Resolved]

NARRATIVE: CASE EVENT DATE: 20221101
